FAERS Safety Report 24429252 (Version 1)
Quarter: 2024Q4

REPORT INFORMATION
  Report Type: Spontaneous
  Country: IT (occurrence: IT)
  Receive Date: 20241011
  Receipt Date: 20241011
  Transmission Date: 20250114
  Serious: Yes (Other)
  Sender: TEVA
  Company Number: None

PATIENT
  Age: 48 Year
  Sex: Male

DRUGS (4)
  1. OXALIPLATIN [Suspect]
     Active Substance: OXALIPLATIN
     Indication: Colon cancer stage IV
     Dosage: 130 MG/M2
     Route: 042
     Dates: start: 20240917, end: 20240917
  2. ACETAMINOPHEN [Concomitant]
     Active Substance: ACETAMINOPHEN
     Indication: Cancer pain
     Dosage: TIME INTERVAL: 0.33333333 DAYS: 1000 MG X 3/DAY
     Route: 048
     Dates: start: 20240606
  3. PANTOPRAZOLE SODIUM [Concomitant]
     Active Substance: PANTOPRAZOLE SODIUM
     Indication: Gastrointestinal disorder
     Dosage: 20 MG X 2/DAY
     Route: 048
     Dates: start: 20230118
  4. PALEXIA [Concomitant]
     Active Substance: TAPENTADOL HYDROCHLORIDE
     Indication: Cancer pain
     Dosage: 25 MG X 2/DAY
     Route: 048
     Dates: start: 20240618

REACTIONS (1)
  - Sensitisation [Recovered/Resolved]

NARRATIVE: CASE EVENT DATE: 20240917
